FAERS Safety Report 5035319-7 (Version None)
Quarter: 2006Q2

REPORT INFORMATION
  Report Type: 
  Country: None (occurrence: None)
  Receive Date: 20060623
  Receipt Date: 20060623
  Transmission Date: 20061013
  Serious: Yes (Hospitalization)
  Sender: FDA-Public Use
  Company Number: None

PATIENT
  Sex: Male
  Weight: 69.6 kg

DRUGS (8)
  1. CYTARABINE [Suspect]
     Dosage: 750 MG
  2. DEXAMETHASONE TAB [Suspect]
     Dosage: 260 MG
  3. ETOPOSIDE [Suspect]
     Dosage: 975 MG
  4. VINCRISTINE [Suspect]
     Dosage: 4 MG
  5. ACYCLOVIR [Concomitant]
  6. ESOMEPRAZOLE [Concomitant]
  7. ITRACONAZOLE [Concomitant]
  8. SULFAMETHOXAZOLE PLUS TRIMETHOPRIM [Concomitant]

REACTIONS (3)
  - ABDOMINAL PAIN [None]
  - ENTERITIS [None]
  - PANCYTOPENIA [None]
